FAERS Safety Report 23969862 (Version 1)
Quarter: 2024Q2

REPORT INFORMATION
  Report Type: Spontaneous
  Country: PK (occurrence: PK)
  Receive Date: 20240613
  Receipt Date: 20240613
  Transmission Date: 20240716
  Serious: Yes (Other)
  Sender: FDA-Public Use
  Company Number: PK-PFIZER INC-202200464203

PATIENT
  Age: 33 Year
  Sex: Female
  Weight: 72 kg

DRUGS (10)
  1. ENBREL [Suspect]
     Active Substance: BENZYL ALCOHOL\ETANERCEPT
     Indication: Ankylosing spondylitis
     Dosage: 50 MG, EVERY 2 WEEKS
     Route: 058
     Dates: start: 201911
  2. ENBREL [Suspect]
     Active Substance: BENZYL ALCOHOL\ETANERCEPT
     Indication: Plantar fasciitis
     Dosage: 50 MILLIGRAM, Q2WK (50 MG EVERY 2 WEEKS)
     Route: 058
  3. ENBREL [Suspect]
     Active Substance: BENZYL ALCOHOL\ETANERCEPT
     Dosage: 50 MILLIGRAM, QWK (50 MG, WEEKLY)
     Route: 058
  4. ENBREL [Suspect]
     Active Substance: BENZYL ALCOHOL\ETANERCEPT
     Dosage: 50 MILLIGRAM, Q2WK (50 MG, EVERY 2 WEEKS)
     Route: 058
     Dates: start: 202310, end: 202310
  5. CELBEXX [Concomitant]
     Indication: Product used for unknown indication
     Dosage: 200 MILLIGRAM (200 MG)
     Route: 065
  6. OSNATE D [Concomitant]
     Indication: Product used for unknown indication
     Dosage: UNK
     Route: 065
  7. OPT D [Concomitant]
     Indication: Product used for unknown indication
     Dosage: 200000 INTERNATIONAL UNIT, QWK (200000 IU ONCE A WEEK)
     Route: 065
  8. COMFORTA [Concomitant]
     Indication: Product used for unknown indication
     Dosage: 10 MILLIGRAM, QD (10 MG, 1/2 X HS(HALF TAB AT NIGHT)
     Route: 065
  9. ALKERIS [Concomitant]
     Indication: Product used for unknown indication
     Dosage: 100 MILLIGRAM, QD (100 MG(NIGHT)
     Route: 065
  10. CEFIXIME [Concomitant]
     Active Substance: CEFIXIME
     Indication: Product used for unknown indication
     Dosage: 400 MG
     Route: 065

REACTIONS (3)
  - Ankylosing spondylitis [Unknown]
  - Drug effect less than expected [Unknown]
  - Off label use [Unknown]

NARRATIVE: CASE EVENT DATE: 20191101
